FAERS Safety Report 17134318 (Version 3)
Quarter: 2020Q1

REPORT INFORMATION
  Report Type: Spontaneous
  Country: US (occurrence: US)
  Receive Date: 20191210
  Receipt Date: 20200121
  Transmission Date: 20200409
  Serious: Yes (Hospitalization, Other)
  Sender: FDA-Public Use
  Company Number: US-MEDEXUS PHARMA, INC.-2019MED00246

PATIENT
  Age: 69 Year
  Sex: Female
  Weight: 78.1 kg

DRUGS (28)
  1. FERROUS SULFATE. [Concomitant]
     Active Substance: FERROUS SULFATE
     Dosage: 325 MG, 1X/DAY WITH BREAKFAST
     Route: 048
  2. NORTRIPTYLINE [Concomitant]
     Active Substance: NORTRIPTYLINE
     Dosage: 50 MG, 1X/DAY
     Route: 048
     Dates: start: 20191110
  3. PREDNISONE. [Concomitant]
     Active Substance: PREDNISONE
     Dosage: 5 MG, 1X/DAY NIGHTLY
     Route: 048
  4. DENOSUMAB [Concomitant]
     Active Substance: DENOSUMAB
     Dosage: 60 MG, ONCE
     Route: 058
  5. FOLIC ACID. [Concomitant]
     Active Substance: FOLIC ACID
     Dosage: 1 MG, 1X/DAY
     Route: 048
  6. CBD CREAM [Concomitant]
     Dosage: UNK, AS NEEDED
  7. SYMBICORT [Concomitant]
     Active Substance: BUDESONIDE\FORMOTEROL FUMARATE DIHYDRATE
     Dosage: 2 PUFFS, 2X/DAY. RINSE MOUTH WITH WATER AFTER USE. DO NOT SWALLOW
  8. ELIQUIS [Concomitant]
     Active Substance: APIXABAN
     Dosage: 5 MG, 2X/DAY
     Route: 048
  9. CALCIUM CARBONATE-VITAMIN D3 [Concomitant]
     Dosage: 1 TABLETS (1250 MG/200 U), 1X/DAY
     Route: 048
  10. PREDNISONE. [Concomitant]
     Active Substance: PREDNISONE
     Dosage: 10 MG, 1X/DAY NIGHTLY
     Route: 048
  11. RASUVO [Suspect]
     Active Substance: METHOTREXATE SODIUM
     Indication: RHEUMATOID ARTHRITIS
     Dosage: 25 MG, 1X/WEEK INJECTED INTO THIGHS ON THURSDAY
     Route: 058
  12. ACETAMINOPHEN. [Concomitant]
     Active Substance: ACETAMINOPHEN
     Dosage: 500 MG, EVERY 6 HOURS AS NEEDED
     Route: 048
  13. FLUTICASONE PROPIONATE. [Concomitant]
     Active Substance: FLUTICASONE PROPIONATE
     Dosage: 100 ?G (2 SPRAYS) INTO EACH NOSTRIL, 1X/DAY
     Route: 045
  14. HYDROCODONE/ACETAMINOPHEN [Concomitant]
     Active Substance: ACETAMINOPHEN\HYDROCODONE
     Dosage: 0.5-1 TABLET, UP TO 4X/DAY (EVERY 6 HOURS) AS NEEDED
     Route: 048
  15. LEVOTHYROXINE. [Concomitant]
     Active Substance: LEVOTHYROXINE
     Dosage: 100 ?G, 1X/DAY
     Route: 048
  16. RISPERIDONE. [Concomitant]
     Active Substance: RISPERIDONE
     Dosage: 4 MG, 1X/DAY AT NIGHT
     Route: 048
  17. AMLODIPINE [Concomitant]
     Active Substance: AMLODIPINE BESYLATE
     Dosage: 10 MG, 1X/DAY
     Route: 048
  18. ERGOCALCIFEROL. [Concomitant]
     Active Substance: ERGOCALCIFEROL
     Dosage: 50000 U, 1X/WEEK EVERY WEDNESDAY MORNING
     Route: 048
  19. ALBUTEROL ACTUATION INHALER [Concomitant]
     Dosage: 180 ?G (2 PUFFS), 6X/DAY AS NEEDED
  20. METOPROLOL. [Concomitant]
     Active Substance: METOPROLOL
     Dosage: 100 MG, 2X/DAY
     Route: 048
  21. MULTIVITAMIN-CA-IRON-MINERALS [Concomitant]
     Dosage: 1 TABLETS, 1X/DAY
     Route: 048
  22. NORTRIPTYLINE [Concomitant]
     Active Substance: NORTRIPTYLINE
     Dosage: 50 MG, 1X/DAY NIGHTLY
     Route: 048
     Dates: end: 20191109
  23. ONDANSETRON [Concomitant]
     Active Substance: ONDANSETRON
     Dosage: 4 MG, UP TO 3X/DAY (EVERY 8 HOURS) AS NEEDED
     Route: 048
  24. SULFAMETHOXAZOLE/TRIMETHOPRIM [Suspect]
     Active Substance: SULFAMETHOXAZOLE\TRIMETHOPRIM
     Dosage: UNK
     Dates: end: 2019
  25. ACETAMINOPHEN. [Concomitant]
     Active Substance: ACETAMINOPHEN
     Dosage: 500 MG, EVERY 4 HOURS AS NEEDED
     Route: 048
  26. CETIRIZINE [Concomitant]
     Active Substance: CETIRIZINE HYDROCHLORIDE
     Dosage: 10 MG, 1X/DAY
     Route: 048
  27. PANTOPRAZOLE SODIUM. [Concomitant]
     Active Substance: PANTOPRAZOLE SODIUM
     Dosage: 40 MG, 1X/DAY
     Route: 048
  28. RISPERIDONE. [Concomitant]
     Active Substance: RISPERIDONE
     Dosage: 8 MG, 1X/DAY AT NIGHT
     Route: 048

REACTIONS (27)
  - Chest pain [Unknown]
  - Diverticulum [Unknown]
  - Respiratory alkalosis [Unknown]
  - Cystitis [Recovered/Resolved]
  - Anaemia [Not Recovered/Not Resolved]
  - Enterovirus infection [Recovered/Resolved]
  - Weight increased [Unknown]
  - Hyponatraemia [Unknown]
  - Flatulence [Not Recovered/Not Resolved]
  - Diarrhoea [Not Recovered/Not Resolved]
  - Somnolence [Unknown]
  - Cardiac failure congestive [Recovering/Resolving]
  - Hypertension [Recovered/Resolved]
  - Encephalopathy [Recovered/Resolved]
  - Arthralgia [Not Recovered/Not Resolved]
  - Lactic acidosis [Recovered/Resolved]
  - Blood creatine phosphokinase increased [Unknown]
  - Abdominal distension [Not Recovered/Not Resolved]
  - Acute left ventricular failure [Recovered/Resolved]
  - Mobility decreased [Not Recovered/Not Resolved]
  - Mental status changes [Recovered/Resolved]
  - Fall [Recovered/Resolved]
  - Rhinovirus infection [Recovered/Resolved]
  - Product dose omission [Unknown]
  - Oedema peripheral [Not Recovered/Not Resolved]
  - Urinary tract infection fungal [Recovered/Resolved]
  - Drug interaction [Unknown]

NARRATIVE: CASE EVENT DATE: 2019
